FAERS Safety Report 16981842 (Version 1)
Quarter: 2019Q4

REPORT INFORMATION
  Report Type: Spontaneous
  Country: ES (occurrence: ES)
  Receive Date: 20191101
  Receipt Date: 20191101
  Transmission Date: 20200122
  Serious: Yes (Hospitalization)
  Sender: FDA-Public Use
  Company Number: ES-TEVA-2019-ES-1130062

PATIENT
  Age: 46 Year
  Sex: Male

DRUGS (3)
  1. ETOPOSIDO [Suspect]
     Active Substance: ETOPOSIDE
     Dates: start: 20190624
  2. CISPLATINO [Suspect]
     Active Substance: CISPLATIN
     Dates: start: 20190624
  3. BLEOMICINA [Suspect]
     Active Substance: BLEOMYCIN SULFATE
     Dates: start: 20190624

REACTIONS (1)
  - Febrile neutropenia [Recovered/Resolved]

NARRATIVE: CASE EVENT DATE: 20190708
